FAERS Safety Report 17997794 (Version 1)
Quarter: 2020Q3

REPORT INFORMATION
  Report Type: Spontaneous
  Country: US (occurrence: US)
  Receive Date: 20200708
  Receipt Date: 20200708
  Transmission Date: 20201103
  Serious: Yes (Hospitalization)
  Sender: FDA-Public Use
  Company Number: US-SEATTLE GENETICS-2020SGN02983

PATIENT
  Age: 78 Year
  Sex: Male

DRUGS (3)
  1. DACARBAZINE. [Suspect]
     Active Substance: DACARBAZINE
     Indication: HODGKIN^S DISEASE
     Dosage: 200 MG, Q3WEEKS
     Route: 042
  2. ADCETRIS [Suspect]
     Active Substance: BRENTUXIMAB VEDOTIN
     Indication: HODGKIN^S DISEASE
     Dosage: 50 MG, Q3WEEKS
     Route: 042
     Dates: start: 20200402, end: 20200616
  3. PEGFILGRASTIM JMDB [Suspect]
     Active Substance: PEGFILGRASTIM-JMDB
     Indication: COLONY STIMULATING FACTOR THERAPY
     Dosage: 0.5 MG
     Route: 065

REACTIONS (6)
  - White blood cell count increased [Unknown]
  - Vein disorder [Unknown]
  - Infusion site swelling [Unknown]
  - White blood cell count decreased [Unknown]
  - Infusion site pain [Unknown]
  - Pyrexia [Not Recovered/Not Resolved]
